FAERS Safety Report 9159666 (Version 1)
Quarter: 2013Q1

REPORT INFORMATION
  Report Type: Spontaneous
  Country: GB (occurrence: None)
  Receive Date: 20130214
  Receipt Date: 20130214
  Transmission Date: 20140127
  Serious: Yes (Disabling)
  Sender: FDA-Public Use
  Company Number: AUR-APL-2013-01388

PATIENT
  Age: 91 Year
  Sex: Female

DRUGS (3)
  1. AMOXICILLIN\ CLAUVULANIC ACID [Suspect]
     Dosage: 500/125 (1 DOSAGE FORMS, 3 IN 1 D), ORAL
     Route: 048
     Dates: start: 20130104, end: 20130110
  2. CLARITHYROMYCIN [Suspect]
     Dosage: 500 MG (250 MG, 2 IN 1 D), ORAL
     Route: 048
     Dates: start: 20130108, end: 20130110
  3. COLCHINCINE [Suspect]
     Dosage: 1000 MCG (500 MCG, 2 IN 1 D), ORAL
     Route: 048
     Dates: start: 20130104, end: 20130110

REACTIONS (3)
  - Nausea [None]
  - Skin reaction [None]
  - Vomiting [None]
